FAERS Safety Report 6778508-3 (Version None)
Quarter: 2010Q2

REPORT INFORMATION
  Report Type: 
  Country: None (occurrence: None)
  Receive Date: 20100618
  Receipt Date: 20100610
  Transmission Date: 20101027
  Serious: Yes (Other)
  Sender: FDA-Public Use
  Company Number: CA-SP-2010-03370

PATIENT
  Age: 11 Year
  Sex: Male

DRUGS (4)
  1. TUBERSOL [Suspect]
     Indication: TUBERCULIN TEST
     Dosage: NOT REPORTED
     Route: 065
  2. MENJUGATE [Suspect]
     Indication: IMMUNISATION
     Route: 030
  3. RECOMBIVAX HB [Suspect]
     Indication: IMMUNISATION
     Route: 030
  4. VARIVAX [Suspect]
     Indication: IMMUNISATION
     Route: 058

REACTIONS (10)
  - ANAPHYLACTIC REACTION [None]
  - DEPRESSED LEVEL OF CONSCIOUSNESS [None]
  - DYSPNOEA [None]
  - FATIGUE [None]
  - HYPERSENSITIVITY [None]
  - LOCAL SWELLING [None]
  - PALLOR [None]
  - PHARYNGEAL OEDEMA [None]
  - PRESYNCOPE [None]
  - SWELLING FACE [None]
